FAERS Safety Report 16821354 (Version 1)
Quarter: 2019Q4

REPORT INFORMATION
  Report Type: Spontaneous
  Country: US (occurrence: US)
  Receive Date: 20190917
  Receipt Date: 20190917
  Transmission Date: 20200122
  Serious: Yes (Hospitalization, Other)
  Sender: FDA-Public Use
  Company Number: None

PATIENT
  Age: 59 Year
  Sex: Female
  Weight: 62.1 kg

DRUGS (4)
  1. ATENOLOL. [Concomitant]
     Active Substance: ATENOLOL
  2. PEPCID [Concomitant]
     Active Substance: FAMOTIDINE
  3. PREVACID [Concomitant]
     Active Substance: LANSOPRAZOLE
  4. ELMIRON [Suspect]
     Active Substance: PENTOSAN POLYSULFATE SODIUM
     Indication: CYSTITIS INTERSTITIAL
     Dosage: ?          QUANTITY:1 CAPSULE(S);?
     Route: 048
     Dates: start: 20180601, end: 20190812

REACTIONS (4)
  - Eye pain [None]
  - Headache [None]
  - Retinal detachment [None]
  - Photopsia [None]

NARRATIVE: CASE EVENT DATE: 20190812
